FAERS Safety Report 8544770-X (Version None)
Quarter: 2012Q3

REPORT INFORMATION
  Report Type: 
  Country: None (occurrence: None)
  Receive Date: 20120727
  Receipt Date: 20120718
  Transmission Date: 20120928
  Serious: Yes (Death, Other)
  Sender: FDA-Public Use
  Company Number: CH-ACTELION-A-CH2008-22772

PATIENT
  Sex: Female
  Weight: 53 kg

DRUGS (4)
  1. NOZINAN [Concomitant]
  2. AMITRIPTYLINE HCL [Concomitant]
  3. ZAVESCA [Suspect]
     Indication: NIEMANN-PICK DISEASE
     Dosage: 200 MG, TID
     Route: 048
     Dates: start: 20070924, end: 20080805
  4. DIAZEPAM [Concomitant]

REACTIONS (8)
  - NIEMANN-PICK DISEASE [None]
  - DISEASE PROGRESSION [None]
  - WEIGHT DECREASED [None]
  - TREMOR [None]
  - DYSPHAGIA [None]
  - DIARRHOEA [None]
  - DEATH [None]
  - DECREASED APPETITE [None]
